APPROVED DRUG PRODUCT: DEXMEDETOMIDINE HYDROCHLORIDE
Active Ingredient: DEXMEDETOMIDINE HYDROCHLORIDE
Strength: EQ 200MCG BASE/50ML (EQ 4MCG BASE/ML)
Dosage Form/Route: SOLUTION;INTRAVENOUS
Application: N206628 | Product #003
Applicant: HQ SPECIALTY PHARMA CORP
Approved: Jun 22, 2018 | RLD: Yes | RS: No | Type: RX

PATENTS:
Patent 9717796 | Expires: Apr 20, 2036
Patent 9649296 | Expires: Apr 20, 2036